FAERS Safety Report 13749838 (Version 1)
Quarter: 2017Q3

REPORT INFORMATION
  Report Type: Spontaneous
  Country: US (occurrence: US)
  Receive Date: 20170713
  Receipt Date: 20170713
  Transmission Date: 20171127
  Serious: Yes (Other)
  Sender: FDA-Public Use
  Company Number: None

PATIENT
  Age: 24 Year
  Sex: Female
  Weight: 84 kg

DRUGS (1)
  1. INFED [Suspect]
     Active Substance: IRON DEXTRAN
     Indication: ANAEMIA OF PREGNANCY
     Dosage: ?          OTHER DOSE:MG;OTHER FREQUENCY:ONCE;?
     Route: 042

REACTIONS (9)
  - Abnormal behaviour [None]
  - Discomfort [None]
  - Back pain [None]
  - Infusion related reaction [None]
  - Dyspnoea [None]
  - Muscle spasms [None]
  - Crying [None]
  - Oxygen saturation decreased [None]
  - Headache [None]

NARRATIVE: CASE EVENT DATE: 20170705
